FAERS Safety Report 9535879 (Version 2)
Quarter: 2013Q3

REPORT INFORMATION
  Report Type: Spontaneous
  Country: BR (occurrence: BR)
  Receive Date: 20130919
  Receipt Date: 20130919
  Transmission Date: 20140515
  Serious: Yes (Other)
  Sender: FDA-Public Use
  Company Number: BR-AMGEN-BRASP2012038806

PATIENT
  Age: 73 Year
  Sex: Female
  Weight: 79 kg

DRUGS (7)
  1. ENBREL [Suspect]
     Indication: RHEUMATOID ARTHRITIS
     Dosage: 50 MG, WEEKLY
     Route: 058
     Dates: start: 201205
  2. LASIX                              /00032601/ [Concomitant]
     Indication: ATRIAL FIBRILLATION
     Dosage: UNK
     Dates: start: 2006
  3. AMIODARONE [Concomitant]
     Indication: ATRIAL FIBRILLATION
     Dosage: UNK
     Dates: start: 200809
  4. SYNTHROID [Concomitant]
     Dosage: UNK
  5. LOSARTAN POTASSIUM [Concomitant]
     Indication: ATRIAL FIBRILLATION
     Dosage: UNK
     Dates: start: 2008
  6. SIMVASTATIN [Concomitant]
     Dosage: UNK
     Dates: start: 2006
  7. METFORMIN [Concomitant]
     Indication: DIABETES MELLITUS MANAGEMENT
     Dosage: UNK
     Dates: start: 2010

REACTIONS (5)
  - Hypersensitivity [Unknown]
  - Aphonia [Not Recovered/Not Resolved]
  - Rhinitis [Unknown]
  - Nasopharyngitis [Unknown]
  - Bronchopneumonia [Unknown]
